FAERS Safety Report 9661316 (Version 1)
Quarter: 2013Q4

REPORT INFORMATION
  Report Type: Spontaneous
  Country: US (occurrence: None)
  Receive Date: 20131030
  Receipt Date: 20131030
  Transmission Date: 20140711
  Serious: Yes (Hospitalization)
  Sender: FDA-Public Use
  Company Number: US13-79

PATIENT
  Age: 20 Year
  Sex: Female

DRUGS (4)
  1. DICLEGIS [Suspect]
     Indication: NAUSEA
     Route: 048
  2. DICLEGIS [Suspect]
     Indication: VOMITING IN PREGNANCY
     Route: 048
  3. DICLOFENAC SODIUM / MISOPROSTOL [Suspect]
     Route: 048
  4. MATERNAL MULTIVITAMINS [Concomitant]

REACTIONS (4)
  - Drug dispensing error [None]
  - Wrong drug administered [None]
  - Vaginal haemorrhage [None]
  - Exposure during pregnancy [None]
